FAERS Safety Report 5342691-7 (Version None)
Quarter: 2007Q2

REPORT INFORMATION
  Report Type: 
  Country: None (occurrence: None)
  Receive Date: 20070601
  Receipt Date: 20061221
  Transmission Date: 20071010
  Serious: No
  Sender: FDA-Public Use
  Company Number: A0632448A

PATIENT
  Age: 45 Year
  Sex: Male

DRUGS (4)
  1. AUGMENTIN '125' [Suspect]
     Indication: PROSTATITIS
     Dosage: 875MG TWICE PER DAY
     Route: 048
     Dates: start: 20061204, end: 20061219
  2. ALLOPURINOL [Concomitant]
  3. UROCIT-K [Concomitant]
  4. AMILORIDE HYDROCHLORIDE [Concomitant]

REACTIONS (1)
  - PRURITUS [None]
